FAERS Safety Report 9703265 (Version 1)
Quarter: 2013Q4

REPORT INFORMATION
  Report Type: Spontaneous
  Country: FR (occurrence: FR)
  Receive Date: 20131122
  Receipt Date: 20131122
  Transmission Date: 20140711
  Serious: Yes (Death, Hospitalization)
  Sender: FDA-Public Use
  Company Number: FR-BRISTOL-MYERS SQUIBB COMPANY-19814011

PATIENT
  Age: 87 Year
  Sex: Female

DRUGS (5)
  1. COUMADIN TABS 2 MG [Suspect]
     Indication: ATRIAL FIBRILLATION
     Dosage: 1DF: HALF TABLET
  2. LEVOTHYROX [Interacting]
     Indication: HYPOTHYROIDISM
     Route: 048
  3. LAMALINE [Concomitant]
     Dosage: 1DF: 2 TABS
     Route: 048
  4. NOVONORM [Concomitant]
     Indication: TYPE 2 DIABETES MELLITUS
     Dosage: 0.5MG TABS
  5. UVEDOSE [Concomitant]
     Dosage: LAST DOSE:APR13
     Route: 048

REACTIONS (3)
  - Cardiac failure [Fatal]
  - International normalised ratio increased [Not Recovered/Not Resolved]
  - Drug interaction [Not Recovered/Not Resolved]
